FAERS Safety Report 18265364 (Version 1)
Quarter: 2020Q3

REPORT INFORMATION
  Report Type: Other
  Country: US (occurrence: US)
  Receive Date: 20200914
  Receipt Date: 20200914
  Transmission Date: 20201103
  Serious: No
  Sender: FDA-Public Use
  Company Number: US-LEADIANT BIOSCIENCES INC-2020STPI000099

PATIENT

DRUGS (3)
  1. IRON [Concomitant]
     Active Substance: IRON
  2. MATULANE [Suspect]
     Active Substance: PROCARBAZINE HYDROCHLORIDE
     Indication: BRAIN NEOPLASM MALIGNANT
     Dosage: 100 MILLIGRAM QD FOR 14 DAYS STARTING DAYS 8?21 OF 21 DAY CYCLE
     Route: 048
     Dates: start: 20200128
  3. PAXIL [Concomitant]
     Active Substance: PAROXETINE HYDROCHLORIDE

REACTIONS (1)
  - Fatigue [Not Recovered/Not Resolved]
